FAERS Safety Report 9207284 (Version 2)
Quarter: 2013Q2

REPORT INFORMATION
  Report Type: Report from Study
  Country: KR (occurrence: KR)
  Receive Date: 20130403
  Receipt Date: 20130424
  Transmission Date: 20140414
  Serious: Yes (Hospitalization)
  Sender: FDA-Public Use
  Company Number: KR-PFIZER INC-2013098070

PATIENT
  Age: 38 Year
  Sex: Male
  Weight: 63.9 kg

DRUGS (11)
  1. IRINOTECAN HCL [Suspect]
     Indication: COLORECTAL CANCER METASTATIC
     Dosage: 180 MG/M2, DAY ONE ON EVERY 14 DAYS
     Route: 042
     Dates: start: 20130214
  2. FLUOROURACIL [Suspect]
     Indication: COLORECTAL CANCER METASTATIC
     Dosage: 400 MG/M2,DAY 1 EVERY 14 DAYS
     Route: 040
     Dates: start: 20130214
  3. FLUOROURACIL [Suspect]
     Dosage: 2400 MG DAY ONE AND TWO EVERY 14 DAYS
     Route: 042
     Dates: start: 20130214
  4. FOLINIC ACID [Suspect]
     Indication: COLORECTAL CANCER METASTATIC
     Dosage: 400 MG/M2, DAY ONE EVERY EVERY 14 DAYS
     Route: 042
     Dates: start: 20130214
  5. BLINDED THERAPY [Suspect]
     Indication: COLORECTAL CANCER METASTATIC
     Dosage: UNK
     Route: 042
     Dates: start: 20130214
  6. DEXAMETHASONE [Concomitant]
     Dosage: UNK
     Dates: start: 20130214, end: 20130216
  7. RAMOSETRON [Concomitant]
     Dosage: UNK
     Dates: start: 20130214, end: 20130216
  8. SODIUM BICARBONATE [Concomitant]
     Dosage: UNK
     Dates: start: 20130214
  9. CHLORPHENIRAMINE [Concomitant]
     Dosage: UNK
     Dates: start: 20130214, end: 20130216
  10. LOPERAMIDE OXIDE [Concomitant]
     Dosage: UNK
     Dates: start: 20130216, end: 20130217
  11. RANITIDINE [Concomitant]
     Dosage: UNK
     Dates: start: 20130214, end: 20130216

REACTIONS (1)
  - Influenza [Recovered/Resolved]
